FAERS Safety Report 25899462 (Version 1)
Quarter: 2025Q4

REPORT INFORMATION
  Report Type: Report from Study
  Country: JP (occurrence: JP)
  Receive Date: 20251009
  Receipt Date: 20251009
  Transmission Date: 20260117
  Serious: Yes (Other)
  Sender: ROCHE
  Company Number: JP-ROCHE-10000401293

PATIENT

DRUGS (2)
  1. ATEZOLIZUMAB [Suspect]
     Active Substance: ATEZOLIZUMAB
     Indication: Hepatocellular carcinoma
     Route: 042
  2. BEVACIZUMAB [Suspect]
     Active Substance: BEVACIZUMAB
     Indication: Hepatocellular carcinoma
     Route: 042

REACTIONS (7)
  - Immune system disorder [Unknown]
  - Immune-mediated hepatic disorder [Unknown]
  - Proteinuria [Unknown]
  - Hypertension [Unknown]
  - Thyroid disorder [Unknown]
  - Diarrhoea [Unknown]
  - Infusion related reaction [Unknown]
